FAERS Safety Report 15964654 (Version 1)
Quarter: 2019Q1

REPORT INFORMATION
  Report Type: Spontaneous
  Country: US (occurrence: US)
  Receive Date: 20190124
  Receipt Date: 20190124
  Transmission Date: 20190418
  Serious: No
  Sender: FDA-Public Use
  Company Number: None

PATIENT
  Age: 42 Year
  Sex: Female

DRUGS (8)
  1. VITAMIN D3 [Concomitant]
     Active Substance: CHOLECALCIFEROL
  2. LISINOPRIL. [Concomitant]
     Active Substance: LISINOPRIL
  3. HYDROCODONE 10MG/ACETAMINOPHEN 325 MG [Suspect]
     Active Substance: ACETAMINOPHEN\HYDROCODONE BITARTRATE
     Indication: LIGAMENT RUPTURE
     Dosage: ?          QUANTITY:10-325MG;?
     Route: 048
     Dates: start: 20181103
  4. VITAMIN D3 [Concomitant]
     Active Substance: CHOLECALCIFEROL
  5. HYDROCODONE 10MG/ACETAMINOPHEN 325 MG [Suspect]
     Active Substance: ACETAMINOPHEN\HYDROCODONE BITARTRATE
     Indication: INTERVERTEBRAL DISC PROTRUSION
     Dosage: ?          QUANTITY:10-325MG;?
     Route: 048
     Dates: start: 20181103
  6. HYDROCHLOROTHIAZIDE. [Concomitant]
     Active Substance: HYDROCHLOROTHIAZIDE
  7. VIT-C 500 [Concomitant]
  8. HYDROCODONE 10MG/ACETAMINOPHEN 325 MG [Suspect]
     Active Substance: ACETAMINOPHEN\HYDROCODONE BITARTRATE
     Indication: SPINAL OSTEOARTHRITIS
     Dosage: ?          QUANTITY:10-325MG;?
     Route: 048
     Dates: start: 20181103

REACTIONS (7)
  - Drug ineffective [None]
  - Vomiting [None]
  - Product quality issue [None]
  - Pain [None]
  - Product formulation issue [None]
  - Nausea [None]
  - Diarrhoea [None]

NARRATIVE: CASE EVENT DATE: 20181111
